FAERS Safety Report 13987448 (Version 1)
Quarter: 2017Q3

REPORT INFORMATION
  Report Type: Spontaneous
  Country: FR (occurrence: FR)
  Receive Date: 20170919
  Receipt Date: 20170919
  Transmission Date: 20171128
  Serious: Yes (Other)
  Sender: FDA-Public Use
  Company Number: FR-ASTRAZENECA-2017SE94953

PATIENT
  Age: 25829 Day
  Sex: Female

DRUGS (1)
  1. HYTACAND [Suspect]
     Active Substance: CANDESARTAN CILEXETIL\HYDROCHLOROTHIAZIDE
     Indication: ESSENTIAL HYPERTENSION
     Dosage: 16 MG/ 12.5 MG, THREE TABLETS IN SINGLE DOSE
     Route: 048
     Dates: start: 20170818

REACTIONS (3)
  - Incorrect dose administered [Recovered/Resolved]
  - Asthenia [Recovered/Resolved]
  - Circumstance or information capable of leading to medication error [Recovered/Resolved]

NARRATIVE: CASE EVENT DATE: 20170818
